FAERS Safety Report 20462486 (Version 1)
Quarter: 2022Q1

REPORT INFORMATION
  Report Type: Report from Study
  Country: US (occurrence: US)
  Receive Date: 20220211
  Receipt Date: 20220211
  Transmission Date: 20220423
  Serious: No
  Sender: FDA-Public Use
  Company Number: US-NOVARTISTESTPH-NVSC2022US029522

PATIENT
  Sex: Female

DRUGS (2)
  1. ENTRESTO [Suspect]
     Active Substance: SACUBITRIL\VALSARTAN
     Indication: Cardiac failure
     Dosage: 50 MG, BID (24 /26 MG)
     Route: 048
     Dates: start: 20220110
  2. METOPROLOL [Suspect]
     Active Substance: METOPROLOL
     Indication: Product used for unknown indication
     Dosage: UNK
     Route: 065

REACTIONS (8)
  - Fluid retention [Unknown]
  - Malaise [Unknown]
  - Peripheral swelling [Unknown]
  - Abdominal distension [Unknown]
  - Headache [Unknown]
  - Blood pressure decreased [Unknown]
  - Fatigue [Unknown]
  - Wrong technique in product usage process [Unknown]
